FAERS Safety Report 5139557-4 (Version None)
Quarter: 2006Q4

REPORT INFORMATION
  Report Type: 
  Country: None (occurrence: None)
  Receive Date: 20061024
  Receipt Date: 20061013
  Transmission Date: 20070319
  Serious: Yes (Other)
  Sender: FDA-Public Use
  Company Number: 2006126344

PATIENT
  Age: 65 Year
  Sex: Male

DRUGS (4)
  1. NORVASC [Suspect]
     Dosage: 5 MG (DAILY), ORAL
     Route: 048
  2. HARNAL D (TAMSULOSIN HYDROCHLORIDE) [Concomitant]
  3. BLOPRESS (CANDESARTAN CILEXETIL) [Concomitant]
  4. SELBEX (TEPRENONE) [Concomitant]

REACTIONS (1)
  - PITUITARY TUMOUR BENIGN [None]
